FAERS Safety Report 24310865 (Version 8)
Quarter: 2025Q3

REPORT INFORMATION
  Report Type: Report from Study
  Country: CA (occurrence: CA)
  Receive Date: 20240912
  Receipt Date: 20250902
  Transmission Date: 20251020
  Serious: Yes (Other)
  Sender: TAKEDA
  Company Number: CA-TAKEDA-2024TUS085051

PATIENT
  Age: 77 Year
  Sex: Female

DRUGS (25)
  1. VEDOLIZUMAB [Suspect]
     Active Substance: VEDOLIZUMAB
     Indication: Crohn^s disease
  2. VEDOLIZUMAB [Suspect]
     Active Substance: VEDOLIZUMAB
     Dosage: 300 MILLIGRAM, Q4WEEKS
     Dates: start: 20211104
  3. VEDOLIZUMAB [Suspect]
     Active Substance: VEDOLIZUMAB
     Dosage: 300 MILLIGRAM, Q4WEEKS
  4. VEDOLIZUMAB [Suspect]
     Active Substance: VEDOLIZUMAB
  5. VEDOLIZUMAB [Suspect]
     Active Substance: VEDOLIZUMAB
  6. VEDOLIZUMAB [Suspect]
     Active Substance: VEDOLIZUMAB
  7. ENTOCORT [Concomitant]
     Active Substance: BUDESONIDE
     Dosage: 3 MILLIGRAM, TID
  8. PENTASA [Concomitant]
     Active Substance: MESALAMINE
     Dosage: 500 MILLIGRAM, BID
  9. NEXIUM [Concomitant]
     Active Substance: ESOMEPRAZOLE MAGNESIUM
     Dosage: 40 MILLIGRAM, BID
  10. VOLTAREN [Concomitant]
     Active Substance: DICLOFENAC SODIUM
  11. SYNTHROID [Concomitant]
     Active Substance: LEVOTHYROXINE SODIUM
     Dosage: 0.125 MILLIGRAM, QD
  12. VENTOLIN [Concomitant]
     Active Substance: ALBUTEROL SULFATE
  13. PROLIA [Concomitant]
     Active Substance: DENOSUMAB
     Dosage: 60 MILLIGRAM, 2/WEEK
  14. VITAMIN B12 [Concomitant]
     Active Substance: CYANOCOBALAMIN
     Dosage: 1000 MICROGRAM, MONTHLY
  15. NASONEX [Concomitant]
     Active Substance: MOMETASONE FUROATE
     Dosage: 500 MILLIGRAM, QD
  16. ACETAMINOPHEN [Concomitant]
     Active Substance: ACETAMINOPHEN
     Dosage: 500 MILLIGRAM, QID
  17. Biocal-d [Concomitant]
     Dosage: UNK, BID
  18. LYRICA [Concomitant]
     Active Substance: PREGABALIN
     Dosage: 25 MILLIGRAM, QD
  19. NYSTATIN [Concomitant]
     Active Substance: NYSTATIN
  20. EPIPEN [Concomitant]
     Active Substance: EPINEPHRINE
  21. BENADRYL [Concomitant]
     Active Substance: DIPHENHYDRAMINE HYDROCHLORIDE
  22. MYOFLEX [Concomitant]
     Active Substance: TROLAMINE SALICYLATE
  23. DOXYCYCLINE HYDROCHLORIDE [Concomitant]
     Active Substance: DOXYCYCLINE HYDROCHLORIDE
     Dates: start: 20160216, end: 20160226
  24. ELIQUIS [Concomitant]
     Active Substance: APIXABAN
  25. LASIX [Concomitant]
     Active Substance: FUROSEMIDE

REACTIONS (23)
  - Crohn^s disease [Unknown]
  - Hypothyroidism [Unknown]
  - Burning sensation [Unknown]
  - COVID-19 [Recovered/Resolved]
  - Mucous stools [Unknown]
  - Peripheral venous disease [Recovering/Resolving]
  - Illness [Unknown]
  - Gait disturbance [Recovering/Resolving]
  - Respiratory disorder [Unknown]
  - Faeces discoloured [Unknown]
  - Weight decreased [Unknown]
  - Frequent bowel movements [Unknown]
  - Discomfort [Unknown]
  - Lymphoedema [Not Recovered/Not Resolved]
  - Malaise [Unknown]
  - Abdominal pain [Unknown]
  - Anal fissure [Unknown]
  - Muscular weakness [Recovering/Resolving]
  - Erythema [Not Recovered/Not Resolved]
  - Rash [Unknown]
  - Fatigue [Recovering/Resolving]
  - Cough [Recovering/Resolving]
  - Pain in extremity [Not Recovered/Not Resolved]

NARRATIVE: CASE EVENT DATE: 20240814
